FAERS Safety Report 16405821 (Version 1)
Quarter: 2019Q2

REPORT INFORMATION
  Report Type: Spontaneous
  Country: US (occurrence: US)
  Receive Date: 20190607
  Receipt Date: 20190607
  Transmission Date: 20190711
  Serious: No
  Sender: FDA-Public Use
  Company Number: US-LANNETT COMPANY, INC.-US-2019LAN000946

PATIENT

DRUGS (2)
  1. DRONABINOL. [Suspect]
     Active Substance: DRONABINOL
     Indication: DECREASED APPETITE
     Dosage: 3 DF, QD, TAKEN WITH MEALS
     Route: 048
     Dates: start: 20190209, end: 201904
  2. DRONABINOL. [Suspect]
     Active Substance: DRONABINOL
     Indication: CACHEXIA

REACTIONS (4)
  - Fatigue [Unknown]
  - Drug ineffective [Unknown]
  - Therapeutic product effect delayed [Unknown]
  - Somnolence [Unknown]

NARRATIVE: CASE EVENT DATE: 20190209
